FAERS Safety Report 8607048 (Version 3)
Quarter: 2013Q4

REPORT INFORMATION
  Report Type: Spontaneous
  Country: US (occurrence: US)
  Receive Date: 20120611
  Receipt Date: 20131129
  Transmission Date: 20140711
  Serious: Yes (Hospitalization)
  Sender: FDA-Public Use
  Company Number: US-ASTRAZENECA-2012SE34740

PATIENT
  Age: 31 Year
  Sex: Female

DRUGS (2)
  1. NEXIUM [Suspect]
     Route: 048
  2. NEXIUM [Suspect]
     Route: 048
     Dates: start: 20090902

REACTIONS (9)
  - Lower limb fracture [Unknown]
  - Tibia fracture [Unknown]
  - Osteoporosis [Unknown]
  - Spinal fracture [Unknown]
  - Bone loss [Unknown]
  - Arthritis [Unknown]
  - Osteoarthritis [Unknown]
  - Periarthritis [Unknown]
  - Synovitis [Unknown]
